FAERS Safety Report 19638448 (Version 2)
Quarter: 2021Q3

REPORT INFORMATION
  Report Type: Report from Study
  Country: US (occurrence: US)
  Receive Date: 20210729
  Receipt Date: 20210927
  Transmission Date: 20211014
  Serious: Yes (Life-Threatening, Hospitalization, Other)
  Sender: FDA-Public Use
  Company Number: US-GILEAD-2021-0526296

PATIENT
  Age: 49 Year
  Sex: Female

DRUGS (31)
  1. ATORVASTATIN CALCIUM. [Concomitant]
     Active Substance: ATORVASTATIN CALCIUM
  2. HYDROCHLOROTHIAZIDE. [Concomitant]
     Active Substance: HYDROCHLOROTHIAZIDE
  3. BENZONATATE. [Concomitant]
     Active Substance: BENZONATATE
  4. FLUTICASONE PROPIONATE;SALMETEROL XINAFOATE [Concomitant]
     Active Substance: FLUTICASONE PROPIONATE\SALMETEROL XINAFOATE
  5. WARFARIN [Concomitant]
     Active Substance: WARFARIN
  6. BLINDED CENICRIVIROC [Suspect]
     Active Substance: CENICRIVIROC
     Indication: COVID-19
     Dosage: UNK UNK, BID
     Route: 048
     Dates: start: 20210317, end: 20210401
  7. MONTELUKAST [Concomitant]
     Active Substance: MONTELUKAST SODIUM
  8. SUMATRIPTAN. [Concomitant]
     Active Substance: SUMATRIPTAN
  9. DEXAMETHASONE. [Concomitant]
     Active Substance: DEXAMETHASONE
  10. FUROSEMIDE. [Concomitant]
     Active Substance: FUROSEMIDE
  11. PREDNISONE. [Concomitant]
     Active Substance: PREDNISONE
  12. ENOXAPARIN [Concomitant]
     Active Substance: ENOXAPARIN
  13. MORPHINE [Concomitant]
     Active Substance: MORPHINE
  14. SALBUTAMOL SULFATE [Concomitant]
     Active Substance: ALBUTEROL SULFATE
  15. MOMETASONE FUROATE. [Concomitant]
     Active Substance: MOMETASONE FUROATE
  16. AMLODIPINE [Concomitant]
     Active Substance: AMLODIPINE BESYLATE
  17. FLUTICASONE PROPIONATE;SALMETEROL XINAFOATE [Concomitant]
     Active Substance: FLUTICASONE PROPIONATE\SALMETEROL XINAFOATE
  18. LIRAGLUTIDE [Concomitant]
     Active Substance: LIRAGLUTIDE
  19. BUDESONIDE;FORMOTEROL FUMARATE [Concomitant]
     Active Substance: BUDESONIDE\FORMOTEROL FUMARATE
  20. GUAIFENESIN. [Concomitant]
     Active Substance: GUAIFENESIN
  21. IBUPROFEN. [Concomitant]
     Active Substance: IBUPROFEN
  22. INSULIN LISPRO [Concomitant]
     Active Substance: INSULIN LISPRO
  23. LORATADINE. [Concomitant]
     Active Substance: LORATADINE
  24. LORAZEPAM. [Concomitant]
     Active Substance: LORAZEPAM
  25. REMDESIVIR. [Suspect]
     Active Substance: REMDESIVIR
     Indication: COVID-19
     Dosage: UNK UNK, QD
     Route: 042
     Dates: start: 20210317, end: 20210317
  26. PLACEBO [Suspect]
     Active Substance: UNSPECIFIED INGREDIENT
     Indication: COVID-19
     Dosage: UNK UNK, BID
     Route: 048
     Dates: start: 20210317, end: 20210401
  27. LOPERAMIDE HYDROCHLORIDE. [Concomitant]
     Active Substance: LOPERAMIDE HYDROCHLORIDE
  28. FENTANYL. [Concomitant]
     Active Substance: FENTANYL
  29. FLUTICASONE. [Concomitant]
     Active Substance: FLUTICASONE
  30. IOPAMIDOL [Concomitant]
     Active Substance: IOPAMIDOL
  31. MENTHOL. [Concomitant]
     Active Substance: MENTHOL

REACTIONS (2)
  - Acute respiratory failure [Recovering/Resolving]
  - Pulmonary embolism [Not Recovered/Not Resolved]

NARRATIVE: CASE EVENT DATE: 20210319
